FAERS Safety Report 24262974 (Version 1)
Quarter: 2024Q3

REPORT INFORMATION
  Report Type: Spontaneous
  Country: US (occurrence: US)
  Receive Date: 20240829
  Receipt Date: 20240829
  Transmission Date: 20241017
  Serious: Yes (Other)
  Sender: BAYER
  Company Number: US-BAYER-2024A121840

PATIENT
  Age: 42 Year
  Sex: Male

DRUGS (3)
  1. STARCH, CORN\ZINC OXIDE [Suspect]
     Active Substance: STARCH, CORN\ZINC OXIDE
     Dosage: UNK
  2. GOLD BOND [Concomitant]
  3. Dr Scholl^s Odor X Foot + Sneaker [Concomitant]

REACTIONS (3)
  - Mesothelioma [None]
  - Exposure to chemical pollution [None]
  - Suspected product contamination [None]

NARRATIVE: CASE EVENT DATE: 20240304
